FAERS Safety Report 6415075-8 (Version None)
Quarter: 2009Q4

REPORT INFORMATION
  Report Type: 
  Country: None (occurrence: None)
  Receive Date: 20091021
  Receipt Date: 20091006
  Transmission Date: 20100525
  Serious: Yes (Hospitalization)
  Sender: FDA-Public Use
  Company Number: 002051

PATIENT
  Sex: Male
  Weight: 97 kg

DRUGS (13)
  1. NEUPRO [Suspect]
     Indication: PARKINSON'S DISEASE
     Dosage: (4 MG QD TRANSDERMAL), (2 MG QD TRANSDERMAL), (8 MG QD TRANSDERMAL)
     Route: 062
     Dates: start: 20070622, end: 20070625
  2. NEUPRO [Suspect]
     Indication: PARKINSON'S DISEASE
     Dosage: (4 MG QD TRANSDERMAL), (2 MG QD TRANSDERMAL), (8 MG QD TRANSDERMAL)
     Route: 062
     Dates: start: 20070619, end: 20070717
  3. NEUPRO [Suspect]
     Indication: PARKINSON'S DISEASE
     Dosage: (4 MG QD TRANSDERMAL), (2 MG QD TRANSDERMAL), (8 MG QD TRANSDERMAL)
     Route: 062
     Dates: start: 20070626, end: 20070717
  4. NEUPRO [Suspect]
     Indication: PARKINSON'S DISEASE
     Dosage: (4 MG QD TRANSDERMAL), (2 MG QD TRANSDERMAL), (8 MG QD TRANSDERMAL)
     Route: 062
     Dates: start: 20070718, end: 20070809
  5. NOVODIGAL /00017701/ [Concomitant]
  6. BISOPROLOL [Concomitant]
  7. MOTILIUM /00498201/ [Concomitant]
  8. FOLSAN [Concomitant]
  9. REQUIP [Concomitant]
  10. AZILECT [Concomitant]
  11. SIFROL [Concomitant]
  12. PRIMIDONE [Concomitant]
  13. PK-MERZ /00055903/ [Concomitant]

REACTIONS (2)
  - NO THERAPEUTIC RESPONSE [None]
  - PARKINSON'S DISEASE [None]
